FAERS Safety Report 11871613 (Version 1)
Quarter: 2015Q4

REPORT INFORMATION
  Report Type: Spontaneous
  Country: US (occurrence: US)
  Receive Date: 20151228
  Receipt Date: 20151228
  Transmission Date: 20160305
  Serious: Yes (Hospitalization)
  Sender: FDA-Public Use
  Company Number: US-TEVA-620895USA

PATIENT
  Age: 20 Month
  Sex: Female

DRUGS (5)
  1. ALPRAZOLAM. [Concomitant]
     Active Substance: ALPRAZOLAM
     Dosage: CONC: 2.5MG (UNKNOWN DOSE INGESTION)
     Route: 048
  2. ARIPIPRAZOLE. [Suspect]
     Active Substance: ARIPIPRAZOLE
     Dosage: CONC: 35MG (UNKNOWN DOSE INGESTION)
     Route: 048
  3. BUSPIRONE [Concomitant]
     Active Substance: BUSPIRONE HYDROCHLORIDE
     Dosage: CONC: 420MG (UNKNOWN DOSE INGESTION)
     Route: 048
  4. FLUVOXAMINE [Concomitant]
     Active Substance: FLUVOXAMINE
     Dosage: (UNKNOWN DOSE INGESTION)
     Route: 048
  5. CLONAZEPAM. [Concomitant]
     Active Substance: CLONAZEPAM
     Dosage: CONC: 17.5MG (UNKNOWN DOSE INGESTION)
     Route: 048

REACTIONS (5)
  - Somnolence [Recovered/Resolved]
  - Ataxia [Recovered/Resolved]
  - Accidental exposure to product [Recovered/Resolved]
  - Drug screen false positive [Recovered/Resolved]
  - Lethargy [Recovered/Resolved]
